FAERS Safety Report 24158121 (Version 2)
Quarter: 2024Q3

REPORT INFORMATION
  Report Type: Spontaneous
  Country: US (occurrence: US)
  Receive Date: 20240731
  Receipt Date: 20240903
  Transmission Date: 20241017
  Serious: No
  Sender: PFIZER
  Company Number: US-PFIZER INC-PV202400096628

PATIENT
  Age: 14 Year
  Sex: Male
  Weight: 53.1 kg

DRUGS (1)
  1. GENOTROPIN [Suspect]
     Active Substance: SOMATROPIN
     Indication: Hypopituitarism
     Dosage: 2.6 MG/DAY 6 DAYS/WK

REACTIONS (1)
  - Therapeutic product effect incomplete [Unknown]
